FAERS Safety Report 21287223 (Version 2)
Quarter: 2022Q3

REPORT INFORMATION
  Report Type: Spontaneous
  Country: US (occurrence: US)
  Receive Date: 20220902
  Receipt Date: 20220907
  Transmission Date: 20221027
  Serious: No
  Sender: FDA-Public Use
  Company Number: US-PFIZER INC-PV202200055621

PATIENT
  Age: 75 Year

DRUGS (2)
  1. DEPO-ESTRADIOL [Suspect]
     Active Substance: ESTRADIOL CYPIONATE
     Indication: Prophylaxis
     Dosage: UNK
  2. DEPO-ESTRADIOL [Suspect]
     Active Substance: ESTRADIOL CYPIONATE
     Indication: Hormone replacement therapy

REACTIONS (2)
  - Hot flush [Unknown]
  - Osteoporosis [Unknown]

NARRATIVE: CASE EVENT DATE: 20220101
